FAERS Safety Report 12957484 (Version 4)
Quarter: 2016Q4

REPORT INFORMATION
  Report Type: Report from Study
  Country: KR (occurrence: KR)
  Receive Date: 20161118
  Receipt Date: 20161216
  Transmission Date: 20170207
  Serious: Yes (Hospitalization, Other)
  Sender: FDA-Public Use
  Company Number: KR-BAYER-2015-114332

PATIENT
  Sex: Female

DRUGS (4)
  1. BETAFERON [Suspect]
     Active Substance: INTERFERON BETA-1B
     Indication: MULTIPLE SCLEROSIS
     Dosage: 1 ML, QOD
     Route: 058
     Dates: start: 20161201
  2. ANTIHYPERTENSIVES [Concomitant]
     Active Substance: UNSPECIFIED INGREDIENT
     Indication: HYPERTENSION
     Dosage: UNK
     Dates: end: 201607
  3. HERBAL NOS [Concomitant]
     Active Substance: HERBALS
     Indication: ASTHENIA
     Dosage: UNK
     Dates: start: 201602
  4. BETAFERON [Suspect]
     Active Substance: INTERFERON BETA-1B
     Indication: MULTIPLE SCLEROSIS
     Dosage: 1 ML, QOD
     Route: 058
     Dates: start: 20110509, end: 20161116

REACTIONS (20)
  - Pain [None]
  - Gait disturbance [Recovering/Resolving]
  - Cerebral infarction [Recovering/Resolving]
  - Joint range of motion decreased [None]
  - Nasopharyngitis [None]
  - Autoimmune hepatitis [None]
  - Asthenia [None]
  - Liver function test increased [Recovered/Resolved]
  - Multiple sclerosis [None]
  - Muscle contracture [None]
  - Pyrexia [None]
  - Pain in extremity [Not Recovered/Not Resolved]
  - Blood pressure systolic increased [Recovered/Resolved]
  - Yellow skin [Recovered/Resolved]
  - Feeling cold [None]
  - Paraesthesia [None]
  - Dysarthria [Recovering/Resolving]
  - Musculoskeletal stiffness [Not Recovered/Not Resolved]
  - Jaundice [Recovered/Resolved]
  - Pain [Not Recovered/Not Resolved]

NARRATIVE: CASE EVENT DATE: 2011
